FAERS Safety Report 6525583-7 (Version None)
Quarter: 2010Q1

REPORT INFORMATION
  Report Type: 
  Country: None (occurrence: None)
  Receive Date: 20100104
  Receipt Date: 20091224
  Transmission Date: 20100710
  Serious: Yes (Other)
  Sender: FDA-Public Use
  Company Number: JP-PFIZER INC-2009315108

PATIENT
  Age: 79 Year
  Sex: Female

DRUGS (3)
  1. ZITHROMAC SR [Suspect]
     Dosage: 2 G, 1X/DAY
     Route: 048
     Dates: start: 20091201, end: 20091201
  2. WARFARIN POTASSIUM [Interacting]
     Dosage: UNK
     Route: 048
  3. DRUG, UNSPECIFIED [Concomitant]

REACTIONS (2)
  - DRUG INTERACTION [None]
  - INTERNATIONAL NORMALISED RATIO INCREASED [None]
